FAERS Safety Report 8721036 (Version 4)
Quarter: 2014Q3

REPORT INFORMATION
  Report Type: Report from Study
  Country: JP (occurrence: JP)
  Receive Date: 20120813
  Receipt Date: 20140806
  Transmission Date: 20150326
  Serious: Yes (Death, Hospitalization, Other)
  Sender: FDA-Public Use
  Company Number: PHHY2012JP064466

PATIENT
  Age: 67 Year
  Sex: Male
  Weight: 64 kg

DRUGS (12)
  1. CELECOXIB. [Suspect]
     Active Substance: CELECOXIB
     Indication: PANCREATIC NEUROENDOCRINE TUMOUR
     Dosage: 100 MG, DAILY
     Route: 048
     Dates: start: 20111219, end: 20120720
  2. ADONA [Concomitant]
     Active Substance: CARBAZOCHROME SODIUM SULFONATE
     Dosage: 90 MG
     Route: 048
     Dates: start: 20090907, end: 20120720
  3. AFINITOR [Suspect]
     Active Substance: EVEROLIMUS
     Indication: PANCREATIC NEUROENDOCRINE TUMOUR
     Dosage: 5 MG, DAILY
     Route: 048
     Dates: start: 20120417, end: 20120719
  4. SANDOSTATIN LAR DEPOT [Concomitant]
     Active Substance: OCTREOTIDE ACETATE
     Indication: PANCREATIC NEUROENDOCRINE TUMOUR
     Route: 030
     Dates: start: 20090729, end: 20120618
  5. KENALOG [Concomitant]
     Active Substance: TRIAMCINOLONE ACETONIDE
     Dates: start: 20120618, end: 20120625
  6. ZYRTEC [Suspect]
     Active Substance: CETIRIZINE HYDROCHLORIDE
     Dosage: 10 MG, DAILY
     Route: 048
     Dates: start: 20120507, end: 20120720
  7. DAIO-KANZO-TO [Concomitant]
     Dosage: 7.5 G
     Route: 048
     Dates: start: 20111121, end: 20120720
  8. LANTUS [Concomitant]
     Active Substance: INSULIN GLARGINE
     Dosage: 4 IU
     Route: 058
     Dates: end: 20120720
  9. ANTEBATE [Concomitant]
     Active Substance: BETAMETHASONE DIPROPIONATE
     Route: 062
     Dates: start: 20120507, end: 20120720
  10. GASTER [Concomitant]
     Active Substance: FAMOTIDINE
     Dosage: 20 MG
     Route: 048
     Dates: end: 20120720
  11. NOVORAPID [Concomitant]
     Active Substance: INSULIN ASPART
     Dosage: 12 IU
     Route: 058
     Dates: end: 20120720
  12. HARNAL [Concomitant]
     Active Substance: TAMSULOSIN HYDROCHLORIDE
     Dosage: 0.2 MG
     Route: 048
     Dates: start: 20100528, end: 20120720

REACTIONS (9)
  - Tachycardia [Fatal]
  - Depressed level of consciousness [Unknown]
  - Anuria [Unknown]
  - Muscular weakness [Unknown]
  - Fatigue [Unknown]
  - Blood glucose increased [Unknown]
  - Pyrexia [Fatal]
  - Sepsis [Fatal]
  - Renal failure [Unknown]

NARRATIVE: CASE EVENT DATE: 20120720
